FAERS Safety Report 6502954-6 (Version None)
Quarter: 2009Q4

REPORT INFORMATION
  Report Type: 
  Country: None (occurrence: None)
  Receive Date: 20091217
  Receipt Date: 20091208
  Transmission Date: 20100525
  Serious: Yes (Hospitalization)
  Sender: FDA-Public Use
  Company Number: PHEH2009US15560

PATIENT
  Sex: Female

DRUGS (8)
  1. EXJADE [Suspect]
     Indication: MYELODYSPLASTIC SYNDROME
     Dosage: 1250 MG, QD
     Route: 048
     Dates: start: 20091013, end: 20091104
  2. EXJADE [Suspect]
     Dosage: 625 MG, DAILY
     Route: 048
     Dates: start: 20090101
  3. ATENOLOL [Concomitant]
     Dosage: UNK
  4. NITROGLYCERIN [Concomitant]
     Dosage: UNK
  5. VITAMIN B-12 [Concomitant]
     Dosage: UNK
  6. VITAMIN D [Concomitant]
     Dosage: UNK
  7. ISOSORBIDE MONONITRATE [Concomitant]
     Dosage: UNK
  8. LASIX [Concomitant]
     Dosage: UNK

REACTIONS (4)
  - ABDOMINAL PAIN UPPER [None]
  - PRURITUS [None]
  - RASH [None]
  - TRANSFUSION [None]
